FAERS Safety Report 12653306 (Version 2)
Quarter: 2016Q3

REPORT INFORMATION
  Report Type: Report from Study
  Country: US (occurrence: US)
  Receive Date: 20160815
  Receipt Date: 20160817
  Transmission Date: 20161109
  Serious: Yes (Other)
  Sender: FDA-Public Use
  Company Number: US-ABBVIE-16P-163-1699308-00

PATIENT
  Sex: Female

DRUGS (1)
  1. LUPRON DEPOT [Suspect]
     Active Substance: LEUPROLIDE ACETATE
     Indication: ENDOMETRIOSIS
     Route: 050

REACTIONS (12)
  - Suicidal ideation [Unknown]
  - Pain [Unknown]
  - Insomnia [Unknown]
  - Emotional disorder [Unknown]
  - Hot flush [Unknown]
  - Weight increased [Unknown]
  - Intra-abdominal fluid collection [Unknown]
  - Tremor [Unknown]
  - Haemorrhage [Unknown]
  - Cyst rupture [Unknown]
  - Alopecia [Unknown]
  - Endometriosis [Unknown]

NARRATIVE: CASE EVENT DATE: 2016
